FAERS Safety Report 23038212 (Version 1)
Quarter: 2023Q4

REPORT INFORMATION
  Report Type: Spontaneous
  Country: US (occurrence: None)
  Receive Date: 20231006
  Receipt Date: 20231006
  Transmission Date: 20240110
  Serious: Yes (Hospitalization, Disabling, Other)
  Sender: FDA-Public Use
  Company Number: None

PATIENT
  Age: 23 Year
  Sex: Female
  Weight: 72.9 kg

DRUGS (4)
  1. PAXLOVID [Suspect]
     Active Substance: NIRMATRELVIR\RITONAVIR
     Indication: COVID-19
     Dosage: OTHER QUANTITY : 3 TABLET(S);?FREQUENCY : TWICE A DAY;?
     Route: 048
     Dates: start: 20230922, end: 20230925
  2. XULANE [Concomitant]
     Active Substance: ETHINYL ESTRADIOL\NORELGESTROMIN
  3. ALBUTEROL [Concomitant]
     Active Substance: ALBUTEROL
  4. ACETAMINOPHEN [Concomitant]
     Active Substance: ACETAMINOPHEN

REACTIONS (9)
  - Diarrhoea [None]
  - Chromaturia [None]
  - Decreased appetite [None]
  - Abdominal pain [None]
  - Back pain [None]
  - Vomiting [None]
  - Thrombosis [None]
  - Hepatic enzyme increased [None]
  - Liver disorder [None]

NARRATIVE: CASE EVENT DATE: 20230924
